FAERS Safety Report 7372558 (Version 3)
Quarter: 2014Q2

REPORT INFORMATION
  Report Type: Spontaneous
  Country: US (occurrence: US)
  Receive Date: 20100430
  Receipt Date: 20140430
  Transmission Date: 20141212
  Serious: No
  Sender: FDA-Public Use
  Company Number: US-ASTRAZENECA-2010SE06143

PATIENT
  Age: 58 Year
  Sex: Female
  Weight: 68 kg

DRUGS (6)
  1. NEXIUM [Suspect]
     Indication: GASTROOESOPHAGEAL REFLUX DISEASE
     Route: 048
     Dates: start: 2001, end: 20140313
  2. NEXIUM [Suspect]
     Indication: GASTROOESOPHAGEAL REFLUX DISEASE
     Route: 048
     Dates: start: 20140403
  3. PRILOSEC [Suspect]
     Indication: GASTROOESOPHAGEAL REFLUX DISEASE
     Route: 048
     Dates: end: 2001
  4. PREDNISONE [Concomitant]
     Indication: MALAISE
  5. MELOXICAM [Concomitant]
     Indication: ARTHRITIS
  6. SINUS MEDICINE [Concomitant]
     Indication: SINUS DISORDER

REACTIONS (16)
  - Pain [Unknown]
  - Aphagia [Not Recovered/Not Resolved]
  - Mobility decreased [Unknown]
  - Oropharyngeal spasm [Unknown]
  - Abdominal distension [Unknown]
  - Nasopharyngitis [Unknown]
  - Oesophageal food impaction [Unknown]
  - Visual acuity reduced [Unknown]
  - Abdominal discomfort [Unknown]
  - Insomnia [Unknown]
  - Vomiting [Unknown]
  - Eructation [Unknown]
  - Drug dose omission [Unknown]
  - Wrong patient received medication [Unknown]
  - Intentional product misuse [Unknown]
  - Drug ineffective [Unknown]
